FAERS Safety Report 17510704 (Version 1)
Quarter: 2020Q1

REPORT INFORMATION
  Report Type: Spontaneous
  Country: DE (occurrence: DE)
  Receive Date: 20200306
  Receipt Date: 20200306
  Transmission Date: 20200409
  Serious: Yes (Hospitalization)
  Sender: FDA-Public Use
  Company Number: NVSC2020DE059476

PATIENT
  Age: 67 Year
  Sex: Female

DRUGS (6)
  1. CLOMIPRAMIN - 1 A PHARMA 75 MG RETARDTABLETTEN [Suspect]
     Active Substance: CLOMIPRAMINE HYDROCHLORIDE
     Indication: PRODUCT USED FOR UNKNOWN INDICATION
     Dosage: 75 MG (1.5-0-0-0, TABLETTEN )
     Route: 048
  2. BISOPROLOL [Suspect]
     Active Substance: BISOPROLOL
     Indication: PRODUCT USED FOR UNKNOWN INDICATION
     Dosage: 5 MG, QD (1-0-0-0, TABLETTEN )
     Route: 048
  3. CYSTINOL AKUT [Suspect]
     Active Substance: ARCTOSTAPHYLOS UVA-URSI LEAF
     Indication: PRODUCT USED FOR UNKNOWN INDICATION
     Dosage: UNK (NK MG, NK, DRAGEES)
     Route: 048
  4. OPIPRAMOL [Concomitant]
     Active Substance: OPIPRAMOL
     Indication: PRODUCT USED FOR UNKNOWN INDICATION
     Dosage: 100 MG (0-0-0.5-0, TABLETTEN)
     Route: 048
  5. AMLODIPINE [Concomitant]
     Active Substance: AMLODIPINE BESYLATE
     Indication: PRODUCT USED FOR UNKNOWN INDICATION
     Dosage: 5 MG, QD (1-0-0-0, TABLETTEN )
     Route: 048
  6. COTRIM FORTE-RATIOPHARM [Suspect]
     Active Substance: SULFAMETHOXAZOLE\TRIMETHOPRIM
     Indication: PRODUCT USED FOR UNKNOWN INDICATION
     Dosage: UNK (NK MG, NK, TABLETTEN)
     Route: 048

REACTIONS (2)
  - General physical health deterioration [Unknown]
  - Pyrexia [Unknown]
